FAERS Safety Report 8135019-0 (Version None)
Quarter: 2012Q1

REPORT INFORMATION
  Report Type: 
  Country: None (occurrence: None)
  Receive Date: 20120214
  Receipt Date: 20120202
  Transmission Date: 20120608
  Serious: Yes (Other)
  Sender: FDA-Public Use
  Company Number: US-UCBSA-051012

PATIENT
  Age: 59 Year
  Sex: Female

DRUGS (1)
  1. KEPPRA [Suspect]
     Dosage: 1000 MG TABLETS

REACTIONS (2)
  - HERPES ZOSTER [None]
  - ROAD TRAFFIC ACCIDENT [None]
